FAERS Safety Report 12645314 (Version 14)
Quarter: 2017Q1

REPORT INFORMATION
  Report Type: Report from Study
  Country: None (occurrence: JP)
  Receive Date: 20160811
  Receipt Date: 20170328
  Transmission Date: 20170428
  Serious: Yes (Hospitalization, Other)
  Sender: FDA-Public Use
  Company Number: JP-ABBVIE-16P-087-1697453-00

PATIENT
  Age: 52 Year
  Sex: Male
  Weight: 59.7 kg

DRUGS (2)
  1. LEVOCETIRIZINE HYDROCHLORIDE [Concomitant]
     Active Substance: LEVOCETIRIZINE HYDROCHLORIDE
     Indication: PRODUCT USED FOR UNKNOWN INDICATION
  2. VIEKIRAX [Suspect]
     Active Substance: OMBITASVIR\PARITAPREVIR\RITONAVIR
     Indication: HEPATITIS C
     Route: 048
     Dates: start: 20160608, end: 20160802

REACTIONS (9)
  - Diabetes mellitus [Unknown]
  - Muscle atrophy [Unknown]
  - Rash [Unknown]
  - Lumbosacral plexopathy [Recovering/Resolving]
  - Lymphopenia [Recovered/Resolved]
  - Chest X-ray abnormal [Unknown]
  - Hypogammaglobulinaemia [Not Recovered/Not Resolved]
  - Oral candidiasis [Recovered/Resolved]
  - Weight decreased [Unknown]

NARRATIVE: CASE EVENT DATE: 201607
